FAERS Safety Report 9151108 (Version 3)
Quarter: 2014Q3

REPORT INFORMATION
  Report Type: Spontaneous
  Country: US (occurrence: US)
  Receive Date: 20130308
  Receipt Date: 20140723
  Transmission Date: 20150326
  Serious: Yes (Hospitalization)
  Sender: FDA-Public Use
  Company Number: US-BAYER-2013-027649

PATIENT
  Age: 23 Year
  Sex: Female
  Weight: 99.32 kg

DRUGS (1)
  1. MIRENA [Suspect]
     Active Substance: LEVONORGESTREL
     Indication: CONTRACEPTION
     Dosage: 20 MCG/24HR, CONT
     Route: 015
     Dates: start: 20051006, end: 20100219

REACTIONS (8)
  - Infertility female [None]
  - Depressed mood [None]
  - Injury [None]
  - Pain [None]
  - Device dislocation [None]
  - Device issue [None]
  - Uterine perforation [None]
  - Emotional distress [None]

NARRATIVE: CASE EVENT DATE: 200512
